FAERS Safety Report 7221520-0 (Version None)
Quarter: 2011Q1

REPORT INFORMATION
  Report Type: 
  Country: None (occurrence: None)
  Receive Date: 20110112
  Receipt Date: 20110107
  Transmission Date: 20110831
  Serious: Yes (Life-Threatening, Hospitalization, Other)
  Sender: FDA-Public Use
  Company Number: PHHY2010US35077

PATIENT
  Sex: Female

DRUGS (6)
  1. LIPITOR [Suspect]
  2. CLOPIDOGREL [Suspect]
  3. RECLAST [Suspect]
     Dosage: UNK
     Dates: start: 20090801
  4. RECLAST [Suspect]
     Dosage: UNK
     Dates: start: 20100910
  5. FOSAMAX [Suspect]
  6. MULTIVITAMIN [Concomitant]

REACTIONS (16)
  - FEELING ABNORMAL [None]
  - CARDIAC OPERATION [None]
  - PAIN [None]
  - DIZZINESS [None]
  - ARTHRITIS [None]
  - DRUG HYPERSENSITIVITY [None]
  - VASCULAR GRAFT [None]
  - WEIGHT DECREASED [None]
  - CORONARY ARTERY DISEASE [None]
  - OPEN FRACTURE [None]
  - FOOT DEFORMITY [None]
  - MUSCLE SPASMS [None]
  - DIARRHOEA [None]
  - CIRCULATORY COLLAPSE [None]
  - COUGH [None]
  - SWELLING [None]
